FAERS Safety Report 4550061-4 (Version None)
Quarter: 2005Q1

REPORT INFORMATION
  Report Type: 
  Country: None (occurrence: None)
  Receive Date: 20050107
  Receipt Date: 20041229
  Transmission Date: 20050727
  Serious: Yes (Hospitalization)
  Sender: FDA-Public Use
  Company Number: KII-2004-0014452

PATIENT
  Age: 24 Year
  Sex: Female

DRUGS (3)
  1. OXYCONTIN [Suspect]
     Dosage: UNK, ORAL
     Route: 048
  2. EXCEDRIN EXTRA STRENGTH (ACETYLSALICYLIC ACID, CAFEINE, PARACETAMOL) [Suspect]
     Dosage: UNK, ORAL
     Route: 048
  3. METOCLOPRAMIDE [Suspect]
     Dosage: UNK, ORAL
     Route: 048

REACTIONS (18)
  - ANION GAP INCREASED [None]
  - BLOOD BICARBONATE DECREASED [None]
  - BLOOD CHLORIDE INCREASED [None]
  - BLOOD POTASSIUM DECREASED [None]
  - DYSARTHRIA [None]
  - DYSTONIA [None]
  - ELECTROCARDIOGRAM PR PROLONGATION [None]
  - FLAT AFFECT [None]
  - GAIT DISTURBANCE [None]
  - GAZE PALSY [None]
  - HEART RATE INCREASED [None]
  - HYPOXIA [None]
  - LETHARGY [None]
  - MULTIPLE DRUG OVERDOSE [None]
  - NAUSEA [None]
  - PANCREATITIS [None]
  - RESPIRATORY RATE INCREASED [None]
  - TREMOR [None]
